FAERS Safety Report 16851637 (Version 3)
Quarter: 2021Q1

REPORT INFORMATION
  Report Type: Spontaneous
  Country: US (occurrence: US)
  Receive Date: 20190925
  Receipt Date: 20210118
  Transmission Date: 20210419
  Serious: Yes (Other)
  Sender: FDA-Public Use
  Company Number: US-GILEAD-2019-0429727

PATIENT
  Age: 49 Year
  Sex: Female
  Weight: 48.53 kg

DRUGS (43)
  1. CARVEDILOL. [Concomitant]
     Active Substance: CARVEDILOL
  2. LOSARTAN. [Concomitant]
     Active Substance: LOSARTAN
  3. OMEPRAZOLE. [Concomitant]
     Active Substance: OMEPRAZOLE
  4. SODIUM BICARBONATE. [Concomitant]
     Active Substance: SODIUM BICARBONATE
  5. VALSARTAN. [Concomitant]
     Active Substance: VALSARTAN
  6. VITAMIN D2 [Concomitant]
     Active Substance: ERGOCALCIFEROL
  7. FERROUS SULFATE. [Concomitant]
     Active Substance: FERROUS SULFATE
  8. ROBAFEN DM [Concomitant]
     Active Substance: DEXTROMETHORPHAN HYDROBROMIDE\GUAIFENESIN
  9. AMOXICILLIN. [Concomitant]
     Active Substance: AMOXICILLIN
  10. ISOSORBIDE. [Concomitant]
     Active Substance: ISOSORBIDE
  11. FERAHEME [Concomitant]
     Active Substance: FERUMOXYTOL NON-STOICHIOMETRIC MAGNETITE
  12. HYDROCORTISONE ACETATE. [Concomitant]
     Active Substance: HYDROCORTISONE ACETATE
  13. IRON [Concomitant]
     Active Substance: IRON
  14. EPIVIR [Concomitant]
     Active Substance: LAMIVUDINE
  15. BENZONATATE. [Concomitant]
     Active Substance: BENZONATATE
  16. SENNA PLUS [SENNA ALEXANDRINA] [Concomitant]
  17. COMPLERA [Suspect]
     Active Substance: EMTRICITABINE\RILPIVIRINE HYDROCHLORIDE\TENOFOVIR DISOPROXIL FUMARATE
     Indication: HIV INFECTION
     Dosage: UNK
     Route: 048
     Dates: start: 201201, end: 201204
  18. TRAMADOL. [Concomitant]
     Active Substance: TRAMADOL
  19. GAVILAX [Concomitant]
     Active Substance: POLYETHYLENE GLYCOL 3350
  20. GUAIFENESIN. [Concomitant]
     Active Substance: GUAIFENESIN
  21. SPS [Concomitant]
     Active Substance: SODIUM POLYSTYRENE SULFONATE
  22. ZIAGEN [Concomitant]
     Active Substance: ABACAVIR SULFATE
  23. ALPRAZOLAM. [Concomitant]
     Active Substance: ALPRAZOLAM
  24. AMLODIPINE [Concomitant]
     Active Substance: AMLODIPINE BESYLATE
  25. CLARITHROMYCIN. [Concomitant]
     Active Substance: CLARITHROMYCIN
  26. HYDRALAZINE [Concomitant]
     Active Substance: HYDRALAZINE HYDROCHLORIDE
  27. HYDROXYCHLOROQUINE [Concomitant]
     Active Substance: HYDROXYCHLOROQUINE
  28. METOPROLOL. [Concomitant]
     Active Substance: METOPROLOL
  29. MUCUS RELIEF ER [Concomitant]
     Active Substance: GUAIFENESIN
  30. VITAMIN B12 [Concomitant]
     Active Substance: CYANOCOBALAMIN
  31. TRUVADA [Suspect]
     Active Substance: EMTRICITABINE\TENOFOVIR DISOPROXIL FUMARATE
     Indication: HIV INFECTION
     Dosage: UNK
     Route: 048
     Dates: start: 201205, end: 201507
  32. MINOXIDIL. [Concomitant]
     Active Substance: MINOXIDIL
  33. VITAMIN D3 [Concomitant]
     Active Substance: CHOLECALCIFEROL
  34. AMLODIPINE BESYLATE. [Concomitant]
     Active Substance: AMLODIPINE BESYLATE
  35. ESCITALOPRAM [Concomitant]
     Active Substance: ESCITALOPRAM OXALATE
  36. HYDROXYZINE HCL [Concomitant]
     Active Substance: HYDROXYZINE HYDROCHLORIDE
  37. VITAMINS NOS [Concomitant]
     Active Substance: VITAMINS
  38. ISENTRESS [Concomitant]
     Active Substance: RALTEGRAVIR POTASSIUM
  39. TIVICAY [Concomitant]
     Active Substance: DOLUTEGRAVIR SODIUM
  40. TRIUMEQ [Concomitant]
     Active Substance: ABACAVIR SULFATE\DOLUTEGRAVIR SODIUM\LAMIVUDINE
  41. CALCIUM [Concomitant]
     Active Substance: CALCIUM
  42. CEPHALEXINE [Concomitant]
     Active Substance: CEPHALEXIN
  43. IBUPROFEN. [Concomitant]
     Active Substance: IBUPROFEN

REACTIONS (14)
  - Chronic kidney disease [Not Recovered/Not Resolved]
  - Emotional distress [Not Recovered/Not Resolved]
  - Renal failure [Not Recovered/Not Resolved]
  - Acute kidney injury [Recovered/Resolved]
  - Fanconi syndrome acquired [Not Recovered/Not Resolved]
  - Nephrogenic anaemia [Not Recovered/Not Resolved]
  - Anxiety [Not Recovered/Not Resolved]
  - Muscle spasms [Not Recovered/Not Resolved]
  - Depression [Not Recovered/Not Resolved]
  - Economic problem [Not Recovered/Not Resolved]
  - Pain [Not Recovered/Not Resolved]
  - Anhedonia [Not Recovered/Not Resolved]
  - Osteoporosis [Unknown]
  - Osteopenia [Not Recovered/Not Resolved]

NARRATIVE: CASE EVENT DATE: 2012
